FAERS Safety Report 25984438 (Version 1)
Quarter: 2025Q4

REPORT INFORMATION
  Report Type: Spontaneous
  Country: US (occurrence: None)
  Receive Date: 20251030
  Receipt Date: 20251030
  Transmission Date: 20260119
  Serious: Yes (Disabling)
  Sender: FDA-CTU
  Company Number: None

PATIENT
  Age: 56 Year
  Sex: Male
  Weight: 107.1 kg

DRUGS (5)
  1. RYBELSUS [Suspect]
     Active Substance: SEMAGLUTIDE
     Indication: Obesity
     Dosage: OTHER QUANTITY : 2 TABLET(S);?
     Route: 048
  2. Lisinopril-hct 20-25 [Concomitant]
  3. COENZYME Q10 [Concomitant]
     Active Substance: DIETARY SUPPLEMENT\UBIDECARENONE
  4. VITAMINS [Concomitant]
     Active Substance: VITAMINS
  5. vitD [Concomitant]

REACTIONS (5)
  - Inflammatory pain [None]
  - Myalgia [None]
  - Muscular weakness [None]
  - Musculoskeletal stiffness [None]
  - Inflammation [None]

NARRATIVE: CASE EVENT DATE: 20250921
